FAERS Safety Report 13669225 (Version 1)
Quarter: 2017Q2

REPORT INFORMATION
  Report Type: Spontaneous
  Country: FR (occurrence: FR)
  Receive Date: 20170620
  Receipt Date: 20170620
  Transmission Date: 20170830
  Serious: Yes (Hospitalization)
  Sender: FDA-Public Use
  Company Number: FR-SA-2017SA107821

PATIENT
  Age: 50 Year
  Sex: Male

DRUGS (1)
  1. RIFINAH [Suspect]
     Active Substance: ISONIAZID\RIFAMPIN
     Indication: TUBERCULOSIS
     Route: 048

REACTIONS (5)
  - C-reactive protein increased [Unknown]
  - Malaise [Unknown]
  - Back pain [Unknown]
  - Autoimmune haemolytic anaemia [Unknown]
  - Acute kidney injury [Unknown]
